FAERS Safety Report 9707685 (Version 1)
Quarter: 2013Q4

REPORT INFORMATION
  Report Type: Spontaneous
  Country: FR (occurrence: FR)
  Receive Date: 20131125
  Receipt Date: 20131125
  Transmission Date: 20140711
  Serious: Yes (Other)
  Sender: FDA-Public Use
  Company Number: FR-SA-2013SA118664

PATIENT
  Age: 57 Year
  Sex: Female

DRUGS (16)
  1. RIFADINE [Suspect]
     Indication: ENDOCARDITIS STAPHYLOCOCCAL
     Dosage: TRETAMENT END DATE :AUG-2013
     Route: 048
     Dates: start: 201308, end: 201308
  2. DALACIN [Suspect]
     Indication: ENDOCARDITIS STAPHYLOCOCCAL
     Dosage: STRENGTH : 600 MG
     Route: 048
     Dates: start: 201308
  3. DALACIN [Suspect]
     Indication: ENDOCARDITIS STAPHYLOCOCCAL
     Route: 048
     Dates: start: 20130907, end: 20130912
  4. DALACIN [Suspect]
     Indication: ENDOCARDITIS STAPHYLOCOCCAL
     Route: 048
     Dates: start: 20130913
  5. BRISTOPEN [Concomitant]
     Indication: ENDOCARDITIS STAPHYLOCOCCAL
     Route: 042
     Dates: start: 201308
  6. BRISTOPEN [Concomitant]
     Indication: ENDOCARDITIS STAPHYLOCOCCAL
     Route: 042
     Dates: start: 20130907, end: 20130912
  7. BRISTOPEN [Concomitant]
     Indication: ENDOCARDITIS STAPHYLOCOCCAL
     Route: 042
     Dates: start: 20130913
  8. KAYEXALATE [Concomitant]
     Indication: HYPERKALAEMIA
     Route: 048
  9. OROCAL D(3) [Concomitant]
     Indication: HYPOCALCAEMIA
     Dosage: DOSE:2 UNIT(S)
     Route: 048
  10. CORDARONE [Concomitant]
     Indication: ATRIAL FIBRILLATION
     Dosage: STRENGTH: 200 MG DOSE:2 UNIT(S)
     Route: 048
  11. MINERALS NOS [Concomitant]
     Indication: BLOOD PHOSPHORUS INCREASED
     Dosage: STRENGTH: 1000 MG DOSE:3 UNIT(S)
     Route: 048
  12. VENOFER [Concomitant]
     Dosage: DOSE:1 UNIT(S)
     Route: 042
     Dates: end: 20130925
  13. ARANESP [Concomitant]
     Route: 058
     Dates: end: 20130923
  14. PREVISCAN [Concomitant]
     Dosage: DOSE:0.25 UNIT(S)
     Route: 048
     Dates: end: 20130925
  15. MIMPARA [Concomitant]
     Indication: HYPERPARATHYROIDISM
     Route: 048
  16. ZYMAD [Concomitant]
     Dosage: DOSE: 1 VIAL

REACTIONS (7)
  - Mixed liver injury [Recovered/Resolved]
  - Cell death [Recovered/Resolved]
  - Cholestasis [Recovered/Resolved]
  - Hepatic failure [Recovered/Resolved]
  - Bilirubin conjugated [Recovered/Resolved]
  - Gamma-glutamyltransferase [Recovered/Resolved]
  - Blood alkaline phosphatase increased [Recovered/Resolved]
